FAERS Safety Report 9513019 (Version 1)
Quarter: 2013Q3

REPORT INFORMATION
  Report Type: Spontaneous
  Country: US (occurrence: US)
  Receive Date: 20130910
  Receipt Date: 20130910
  Transmission Date: 20140515
  Serious: No
  Sender: FDA-Public Use
  Company Number: US-PFIZER INC-2013256147

PATIENT
  Age: 60 Year
  Sex: Female
  Weight: 90.7 kg

DRUGS (2)
  1. ALSUMA [Suspect]
     Indication: MIGRAINE
     Dosage: 6 MG, AS NEEDED
     Route: 030
     Dates: start: 201306
  2. RELPAX [Concomitant]
     Indication: MIGRAINE
     Dosage: UNK

REACTIONS (3)
  - Incorrect route of drug administration [Unknown]
  - Injection site pain [Recovering/Resolving]
  - Limb discomfort [Unknown]
